FAERS Safety Report 8848345 (Version 1)
Quarter: 2012Q4

REPORT INFORMATION
  Report Type: 
  Country: GB (occurrence: GB)
  Receive Date: 20121018
  Receipt Date: 20121018
  Transmission Date: 20130627
  Serious: Yes (Hospitalization)
  Sender: FDA-Public Use
  Company Number: GB-009507513-1210GBR003848

PATIENT
  Age: 49 Year
  Sex: Female

DRUGS (4)
  1. SITAGLIPTIN PHOSPHATE [Suspect]
     Dosage: 50 mg, qd
     Route: 048
     Dates: start: 20120903
  2. GLICLAZIDE [Concomitant]
     Dosage: 80 mg, UNK
     Route: 048
  3. INSULIN HUMAN [Concomitant]
  4. METFORMIN [Concomitant]
     Dosage: 500 mg, UNK
     Route: 048

REACTIONS (3)
  - Colitis ulcerative [Recovering/Resolving]
  - Lactic acidosis [Unknown]
  - Condition aggravated [Unknown]
